FAERS Safety Report 5277903-1 (Version None)
Quarter: 2007Q1

REPORT INFORMATION
  Report Type: 
  Country: None (occurrence: None)
  Receive Date: 20070327
  Receipt Date: 20070315
  Transmission Date: 20070707
  Serious: Yes (Disabling)
  Sender: FDA-Public Use
  Company Number: CA-PFIZER INC-2007021254

PATIENT
  Age: 90 Year
  Sex: Male

DRUGS (3)
  1. NORVASC [Suspect]
     Indication: HYPERTENSION
     Route: 048
  2. LIPITOR [Suspect]
     Route: 048
  3. ACCUPRIL [Concomitant]
     Route: 048

REACTIONS (2)
  - GAIT DISTURBANCE [None]
  - OEDEMA PERIPHERAL [None]
